FAERS Safety Report 10227025 (Version 2)
Quarter: 2014Q3

REPORT INFORMATION
  Report Type: Spontaneous
  Country: US (occurrence: None)
  Receive Date: 20140606
  Receipt Date: 20140902
  Transmission Date: 20150326
  Serious: Yes (Hospitalization, Other)
  Sender: FDA-Public Use
  Company Number: UNT-2014-001396

PATIENT
  Age: 18 Year
  Sex: Male
  Weight: 52.2 kg

DRUGS (2)
  1. TYVASO [Suspect]
     Active Substance: TREPROSTINIL
     Indication: PULMONARY ARTERIAL HYPERTENSION
     Route: 055
     Dates: start: 20140516
  2. LETAIRIS [Concomitant]
     Active Substance: AMBRISENTAN

REACTIONS (7)
  - Condition aggravated [None]
  - Amnesia [None]
  - Dizziness [None]
  - Syncope [None]
  - Interstitial lung disease [None]
  - Pulmonary arterial hypertension [None]
  - Treatment noncompliance [None]

NARRATIVE: CASE EVENT DATE: 201405
